FAERS Safety Report 17202797 (Version 1)
Quarter: 2019Q4

REPORT INFORMATION
  Report Type: Spontaneous
  Country: US (occurrence: US)
  Receive Date: 20191226
  Receipt Date: 20191226
  Transmission Date: 20200122
  Serious: No
  Sender: FDA-Public Use
  Company Number: US-JNJFOC-20191234530

PATIENT
  Age: 34 Year
  Sex: Female
  Weight: 80.81 kg

DRUGS (2)
  1. WELLBUTRIN [Concomitant]
     Active Substance: BUPROPION HYDROCHLORIDE
     Route: 048
  2. TOPAMAX [Suspect]
     Active Substance: TOPIRAMATE
     Indication: DRUG DEPENDENCE
     Route: 048
     Dates: start: 20191126

REACTIONS (7)
  - Off label use [Unknown]
  - Product prescribing error [Unknown]
  - Paraesthesia [Not Recovered/Not Resolved]
  - Product use in unapproved indication [Unknown]
  - Apathy [Not Recovered/Not Resolved]
  - Incorrect dose administered [Unknown]
  - Depression [Not Recovered/Not Resolved]

NARRATIVE: CASE EVENT DATE: 201911
